FAERS Safety Report 5304374-9 (Version None)
Quarter: 2007Q2

REPORT INFORMATION
  Report Type: 
  Country: None (occurrence: None)
  Receive Date: 20070423
  Receipt Date: 20070412
  Transmission Date: 20071010
  Serious: Yes (Hospitalization)
  Sender: FDA-Public Use
  Company Number: ES-ROCHE-492925

PATIENT
  Age: 60 Year
  Sex: Male

DRUGS (8)
  1. XELODA [Suspect]
     Dosage: FORM: COATED TABLET.
     Route: 065
     Dates: start: 20070220, end: 20070220
  2. GEMZAR [Suspect]
     Dosage: FORM: VIAL.
     Route: 065
     Dates: start: 20070220, end: 20070220
  3. CAPOTEN [Concomitant]
     Dosage: LONG TERM THERAPY.
     Route: 048
  4. COLCHIMAX [Concomitant]
     Route: 048
  5. OMEPRAZOLE [Concomitant]
     Route: 048
  6. DIPYRONE TAB [Concomitant]
  7. EMPORTAL [Concomitant]
  8. ONDANSETRON [Concomitant]
     Dates: start: 20070220, end: 20070220

REACTIONS (2)
  - OESOPHAGITIS [None]
  - VOMITING [None]
